FAERS Safety Report 8193074-6 (Version None)
Quarter: 2012Q1

REPORT INFORMATION
  Report Type: 
  Country: None (occurrence: None)
  Receive Date: 20120221
  Receipt Date: 20120119
  Transmission Date: 20120608
  Serious: No
  Sender: FDA-Public Use
  Company Number: 1000027260

PATIENT
  Sex: Female

DRUGS (3)
  1. VIIBRYD [Suspect]
     Dosage: ; (20 MG)
     Dates: start: 20120117
  2. VIIBRYD [Suspect]
     Dosage: ; (20 MG)
     Dates: start: 20111201
  3. SEROTONIN SUPPLEMENT (SEROTONIN SUPPLEMENT) (SEROTONIN SUPPLEMENT) [Concomitant]

REACTIONS (4)
  - LETHARGY [None]
  - FEELING ABNORMAL [None]
  - INSOMNIA [None]
  - ABNORMAL DREAMS [None]
